FAERS Safety Report 9753463 (Version 2)
Quarter: 2013Q4

REPORT INFORMATION
  Report Type: Report from Study
  Country: FR (occurrence: FR)
  Receive Date: 20131213
  Receipt Date: 20131223
  Transmission Date: 20140711
  Serious: Yes (Death, Other)
  Sender: FDA-Public Use
  Company Number: FR-PFIZER INC-2013350278

PATIENT
  Age: 50 Year
  Sex: Male

DRUGS (11)
  1. MYLOTARG [Suspect]
     Indication: ACUTE MYELOID LEUKAEMIA RECURRENT
     Dosage: 6 MG, CYCLIC ON DAY 1, DAY 4 AND DAY 7
     Route: 042
     Dates: start: 20131001, end: 20131007
  2. ARACYTINE [Suspect]
     Indication: ACUTE MYELOID LEUKAEMIA RECURRENT
     Dosage: 400 MG, CYCLIC ON DAY 1 AND DAY 7
     Route: 042
     Dates: start: 20131001, end: 20131007
  3. DAUNORUBICIN [Suspect]
     Indication: ACUTE MYELOID LEUKAEMIA RECURRENT
     Dosage: 120 MG, CYCLIC ON DAY 1 AND DAY 3
     Route: 042
     Dates: start: 20131001, end: 20131007
  4. HYDREA [Concomitant]
     Dosage: UNK
     Dates: start: 20130924
  5. DEXAMETHASONE [Concomitant]
     Dosage: UNK
     Dates: start: 20130924
  6. FASTURTEC [Concomitant]
     Indication: PROPHYLAXIS
     Dosage: UNK
     Dates: start: 20130924
  7. FORTUM [Concomitant]
     Indication: PYREXIA
     Dosage: UNK
     Dates: start: 20131001
  8. PIPERACILLIN SODIUM W/TAZOBACTAM SODIUM [Concomitant]
     Indication: PYREXIA
     Dosage: UNK
     Dates: start: 20131001, end: 20131008
  9. AMIKACIN [Concomitant]
     Indication: PYREXIA
     Dosage: UNK
     Dates: start: 20131001
  10. CASPOFUNGIN [Concomitant]
     Indication: PYREXIA
     Dosage: UNK
     Dates: start: 20131001
  11. VANCOMYCIN [Concomitant]
     Dosage: UNK
     Dates: start: 20131008

REACTIONS (5)
  - Neutropenic colitis [Unknown]
  - Venoocclusive liver disease [Fatal]
  - Sepsis [Unknown]
  - Mucosal inflammation [Unknown]
  - Pyrexia [Unknown]
